FAERS Safety Report 9164013 (Version 3)
Quarter: 2013Q3

REPORT INFORMATION
  Report Type: Spontaneous
  Country: US (occurrence: US)
  Receive Date: 20130314
  Receipt Date: 20130807
  Transmission Date: 20140515
  Serious: Yes (Hospitalization)
  Sender: FDA-Public Use
  Company Number: US-009507513-1303USA005565

PATIENT
  Age: 47 Year
  Sex: Female
  Weight: 70.29 kg

DRUGS (13)
  1. VICTRELIS [Suspect]
     Indication: HEPATITIS C
     Dosage: 800 MG, TID
     Route: 048
     Dates: start: 20130312
  2. RIBASPHERE [Suspect]
     Indication: HEPATITIS C
     Dosage: 600 MG, QAM
     Route: 048
     Dates: start: 20130301
  3. PEGASYS [Suspect]
     Indication: HEPATITIS C
     Dosage: 180 MICROGRAM, QW
     Route: 048
     Dates: start: 20130301
  4. LACTULOSE [Concomitant]
  5. ASPIRIN (+) BUTALBITAL (+) CAFFEINE [Concomitant]
  6. CALCIUM (UNSPECIFIED) [Concomitant]
  7. ESTRADIOL [Concomitant]
  8. ASCORBIC ACID [Concomitant]
  9. VITAMIN D (UNSPECIFIED) [Concomitant]
  10. PROCRIT [Concomitant]
  11. XANAX [Concomitant]
  12. MAGNESIUM OXIDE [Concomitant]
  13. LUNESTA [Concomitant]

REACTIONS (31)
  - Injection site reaction [Unknown]
  - Local swelling [Unknown]
  - Malaise [Unknown]
  - Skin hypopigmentation [Unknown]
  - Leukopenia [Unknown]
  - White blood cell count decreased [Unknown]
  - Hyperhidrosis [Unknown]
  - White blood cell count decreased [Unknown]
  - Leukopenia [Unknown]
  - Influenza like illness [Unknown]
  - Dyspnoea [Unknown]
  - Pruritus [Unknown]
  - Thrombocytopenia [Unknown]
  - Anaemia [Unknown]
  - Haemoglobin decreased [Unknown]
  - Fatigue [Unknown]
  - Cough [Unknown]
  - Dizziness [Unknown]
  - Nausea [Unknown]
  - Anaemia [Not Recovered/Not Resolved]
  - Haemoglobin decreased [Unknown]
  - Fatigue [Unknown]
  - Dyspnoea [Unknown]
  - Platelet count decreased [Unknown]
  - Malaise [Recovering/Resolving]
  - Pallor [Unknown]
  - Viral infection [Unknown]
  - Mouth ulceration [Recovered/Resolved]
  - Respiratory tract infection [Recovered/Resolved]
  - Neutropenia [Not Recovered/Not Resolved]
  - Face oedema [Unknown]
